FAERS Safety Report 17417870 (Version 1)
Quarter: 2020Q1

REPORT INFORMATION
  Report Type: Report from Study
  Country: None (occurrence: JP)
  Receive Date: 20200213
  Receipt Date: 20200213
  Transmission Date: 20200409
  Serious: Yes (Hospitalization)
  Sender: FDA-Public Use
  Company Number: JP-ABBVIE-20K-087-3268267-00

PATIENT
  Age: 45 Year
  Sex: Female
  Weight: 56 kg

DRUGS (14)
  1. DUODOPA [Suspect]
     Active Substance: CARBIDOPA\LEVODOPA
     Dosage: MD: 17.5 ML?CD: 2.0 ML/HR ? 16 HRS?ED: 0.5 ML/UNIT ? 0
     Route: 050
     Dates: start: 20190724
  2. BENFOTIAMINE;CYANOCOBALAMIN;PYRIDOXINE [Concomitant]
     Indication: PRODUCT USED FOR UNKNOWN INDICATION
     Route: 048
     Dates: start: 20190830
  3. DUODOPA [Suspect]
     Active Substance: CARBIDOPA\LEVODOPA
     Indication: PARKINSON^S DISEASE
     Dosage: MD: 10 ML?CD: 0.8 ML/HR ? 16 HRS?ED: 0.5 ML/UNIT ? 0
     Route: 050
     Dates: start: 20190627, end: 20190627
  4. DUODOPA [Suspect]
     Active Substance: CARBIDOPA\LEVODOPA
     Dosage: MD: 18 ML?CD: 2.1 ML/HR ? 16 HRS?ED: 0.5 ML/UNIT ? 0
     Route: 050
     Dates: start: 20190717, end: 20190723
  5. DUODOPA [Suspect]
     Active Substance: CARBIDOPA\LEVODOPA
     Dosage: MD: 14 ML?CD: 1.4 ML/HR ? 16 HRS?ED: 0.5 ML/UNIT ? 0
     Route: 050
     Dates: start: 20190702, end: 20190716
  6. DUODOPA [Suspect]
     Active Substance: CARBIDOPA\LEVODOPA
     Dosage: MD: 11 ML?CD: 1.2 ML/HR ? 16 HRS?ED: 0.5 ML/UNIT ? 0
     Route: 050
     Dates: start: 20190701, end: 20190701
  7. ROTIGOTINE [Concomitant]
     Active Substance: ROTIGOTINE
     Indication: PARKINSON^S DISEASE
     Route: 062
     Dates: end: 20190630
  8. ROTIGOTINE [Concomitant]
     Active Substance: ROTIGOTINE
     Route: 062
     Dates: start: 20190701, end: 20190721
  9. URAPIDIL [Concomitant]
     Active Substance: URAPIDIL
     Indication: PRODUCT USED FOR UNKNOWN INDICATION
     Route: 048
     Dates: start: 20191011
  10. ROTIGOTINE [Concomitant]
     Active Substance: ROTIGOTINE
     Route: 062
     Dates: start: 20190722, end: 20190912
  11. DUODOPA [Suspect]
     Active Substance: CARBIDOPA\LEVODOPA
     Dosage: MD: 10 ML?CD: 1.0 ML/HR ? 16 HRS?ED: 0.5 ML/UNIT ? 0
     Route: 050
     Dates: start: 20190628, end: 20190630
  12. MOSAPRIDE CITRATE HYDRATE [Concomitant]
     Active Substance: MOSAPRIDE CITRATE DIHYDRATE
     Indication: PRODUCT USED FOR UNKNOWN INDICATION
     Route: 048
  13. ZINC ACETATE HYDRATE [Concomitant]
     Indication: PRODUCT USED FOR UNKNOWN INDICATION
     Route: 048
     Dates: start: 20190830
  14. LANSOPRAZOLE. [Concomitant]
     Active Substance: LANSOPRAZOLE
     Indication: PRODUCT USED FOR UNKNOWN INDICATION
     Route: 048
     Dates: start: 20190913

REACTIONS (1)
  - Peritonitis [Recovered/Resolved]

NARRATIVE: CASE EVENT DATE: 20190712
